FAERS Safety Report 9670223 (Version 3)
Quarter: 2014Q1

REPORT INFORMATION
  Report Type: Report from Study
  Country: US (occurrence: US)
  Receive Date: 20131105
  Receipt Date: 20140309
  Transmission Date: 20141002
  Serious: Yes (Other)
  Sender: FDA-Public Use
  Company Number: PHEH2013US023074

PATIENT
  Age: 52 Year
  Sex: Female
  Weight: 64.31 kg

DRUGS (5)
  1. GILENYA [Suspect]
     Indication: MULTIPLE SCLEROSIS
     Dosage: 0.5 MG, QD
     Route: 048
     Dates: start: 20120822
  2. BUSPAR [Concomitant]
     Dosage: 5 MG, QD
     Route: 048
     Dates: start: 20110113
  3. MULTI-VIT [Concomitant]
     Dosage: UNK UKN, QD
     Route: 048
     Dates: start: 20120822
  4. PAXIL [Concomitant]
     Dosage: 10 MG, QD
     Route: 048
     Dates: start: 20110113
  5. TYLENOL [Concomitant]
     Dosage: 2 DF, QHS
     Route: 048

REACTIONS (6)
  - Adrenal mass [Recovered/Resolved]
  - Renal cell carcinoma [Recovered/Resolved]
  - Abdominal pain [Recovered/Resolved]
  - Gastrointestinal motility disorder [Unknown]
  - Constipation [Unknown]
  - Pelvic fluid collection [Unknown]
